FAERS Safety Report 16523878 (Version 1)
Quarter: 2019Q3

REPORT INFORMATION
  Report Type: Spontaneous
  Country: US (occurrence: US)
  Receive Date: 20190703
  Receipt Date: 20190703
  Transmission Date: 20191004
  Serious: No
  Sender: FDA-Public Use
  Company Number: US-HIKMA PHARMACEUTICALS USA INC.-US-H14001-19-01742

PATIENT
  Age: 71 Year
  Sex: Female
  Weight: 83.91 kg

DRUGS (5)
  1. CLOBETASOL [Concomitant]
     Active Substance: CLOBETASOL
     Indication: RASH
     Route: 065
     Dates: start: 20181218, end: 20190110
  2. CORTISONE CREAM [Suspect]
     Active Substance: HYDROCORTISONE
     Indication: RASH
     Route: 065
  3. DESOXIMETASONE. [Concomitant]
     Active Substance: DESOXIMETASONE
     Indication: RASH
     Route: 065
     Dates: start: 20181218, end: 20190110
  4. LEVOTHYROXIN [Concomitant]
     Active Substance: LEVOTHYROXINE
     Indication: THYROID DISORDER
     Route: 065
  5. CORTISONE [Suspect]
     Active Substance: CORTISONE
     Indication: RASH
     Route: 048

REACTIONS (2)
  - Rash [Recovered/Resolved]
  - Pruritus [Recovered/Resolved]

NARRATIVE: CASE EVENT DATE: 20181219
